FAERS Safety Report 9411511 (Version 4)
Quarter: 2014Q1

REPORT INFORMATION
  Report Type: Spontaneous
  Country: CA (occurrence: CA)
  Receive Date: 20130722
  Receipt Date: 20140301
  Transmission Date: 20141002
  Serious: Yes (Other)
  Sender: FDA-Public Use
  Company Number: CA-ROCHE-1250357

PATIENT
  Age: 57 Year
  Sex: Female

DRUGS (5)
  1. XOLAIR [Suspect]
     Indication: ASTHMA
     Route: 058
     Dates: start: 20100625
  2. XOLAIR [Suspect]
     Route: 058
     Dates: start: 20130712
  3. XOLAIR [Suspect]
     Route: 058
     Dates: start: 20130823
  4. XOLAIR [Suspect]
     Route: 058
     Dates: start: 20140113
  5. XOLAIR [Suspect]
     Route: 058
     Dates: start: 20140224

REACTIONS (5)
  - Blood pressure decreased [Not Recovered/Not Resolved]
  - Vertigo [Not Recovered/Not Resolved]
  - Asthenia [Unknown]
  - Sinusitis [Unknown]
  - Arthralgia [Recovered/Resolved]
